FAERS Safety Report 9836927 (Version 2)
Quarter: 2014Q1

REPORT INFORMATION
  Report Type: Spontaneous
  Country: US (occurrence: US)
  Receive Date: 20140123
  Receipt Date: 20140220
  Transmission Date: 20141002
  Serious: No
  Sender: FDA-Public Use
  Company Number: US-PFIZER INC-2014017541

PATIENT
  Age: 83 Year
  Sex: Female

DRUGS (3)
  1. XELJANZ [Suspect]
     Dosage: 2 DF, DAILY
     Dates: start: 20140102
  2. XELJANZ [Suspect]
     Dosage: UNK
     Dates: start: 20140114, end: 20140117
  3. XELJANZ [Suspect]
     Dosage: 1 DF, DAILY

REACTIONS (3)
  - Dizziness [Unknown]
  - Nausea [Unknown]
  - Malaise [Unknown]
